FAERS Safety Report 4545844-0 (Version None)
Quarter: 2005Q1

REPORT INFORMATION
  Report Type: 
  Country: None (occurrence: None)
  Receive Date: 20050105
  Receipt Date: 20050105
  Transmission Date: 20050727
  Serious: Yes (Other)
  Sender: FDA-Public Use
  Company Number: None

PATIENT
  Sex: Female
  Weight: 68.0396 kg

DRUGS (1)
  1. DIFLUCAN [Suspect]
     Indication: VAGINAL MYCOSIS
     Dosage: 150MG  1 TIME ORAL
     Route: 048
     Dates: start: 20041223, end: 20041223

REACTIONS (9)
  - BLISTER [None]
  - BURNING SENSATION [None]
  - ERYTHEMA [None]
  - HERPES VIRUS INFECTION [None]
  - PAIN [None]
  - PRURITUS [None]
  - RASH [None]
  - STEVENS-JOHNSON SYNDROME [None]
  - URTICARIA [None]
